FAERS Safety Report 20154863 (Version 4)
Quarter: 2022Q4

REPORT INFORMATION
  Report Type: Report from Study
  Country: JP (occurrence: JP)
  Receive Date: 20211207
  Receipt Date: 20221229
  Transmission Date: 20230112
  Serious: Yes (Other)
  Sender: FDA-Public Use
  Company Number: JP-CHUGAI-A2020044607ROCHE

PATIENT
  Age: 56 Year
  Sex: Male
  Weight: 63 kg

DRUGS (45)
  1. BEVACIZUMAB [Suspect]
     Active Substance: BEVACIZUMAB
     Indication: Rectal cancer
     Route: 041
     Dates: start: 20200825, end: 20200825
  2. BEVACIZUMAB [Suspect]
     Active Substance: BEVACIZUMAB
     Dosage: DAY1
     Route: 041
     Dates: start: 20200915, end: 20201027
  3. BEVACIZUMAB [Suspect]
     Active Substance: BEVACIZUMAB
     Dosage: DAY1
     Route: 041
     Dates: start: 20201124, end: 20201222
  4. BEVACIZUMAB [Suspect]
     Active Substance: BEVACIZUMAB
     Dosage: DAY1
     Route: 041
     Dates: start: 20210105, end: 20210608
  5. BEVACIZUMAB [Suspect]
     Active Substance: BEVACIZUMAB
     Route: 041
     Dates: start: 20210629, end: 20210629
  6. BEVACIZUMAB [Suspect]
     Active Substance: BEVACIZUMAB
     Route: 041
     Dates: start: 20210727, end: 20211102
  7. BEVACIZUMAB [Suspect]
     Active Substance: BEVACIZUMAB
     Route: 041
     Dates: start: 20220426
  8. IRINOTECAN HYDROCHLORIDE [Concomitant]
     Active Substance: IRINOTECAN HYDROCHLORIDE
     Indication: Rectal cancer
     Dosage: DAY1
     Route: 041
     Dates: start: 20200825, end: 20200825
  9. IRINOTECAN HYDROCHLORIDE [Concomitant]
     Active Substance: IRINOTECAN HYDROCHLORIDE
     Dosage: DAY1
     Route: 041
     Dates: start: 20200915, end: 20201027
  10. IRINOTECAN HYDROCHLORIDE [Concomitant]
     Active Substance: IRINOTECAN HYDROCHLORIDE
     Dosage: DAY1
     Route: 041
     Dates: start: 20201124, end: 20210608
  11. IRINOTECAN HYDROCHLORIDE [Concomitant]
     Active Substance: IRINOTECAN HYDROCHLORIDE
     Route: 041
     Dates: start: 20210629, end: 20210629
  12. IRINOTECAN HYDROCHLORIDE [Concomitant]
     Active Substance: IRINOTECAN HYDROCHLORIDE
     Route: 041
     Dates: start: 20210727
  13. IRINOTECAN HYDROCHLORIDE [Concomitant]
     Active Substance: IRINOTECAN HYDROCHLORIDE
     Route: 041
     Dates: start: 20211130, end: 20220405
  14. OXALIPLATIN [Concomitant]
     Active Substance: OXALIPLATIN
     Indication: Rectal cancer
     Dosage: DAY1
     Route: 041
     Dates: start: 20200825, end: 20200825
  15. OXALIPLATIN [Concomitant]
     Active Substance: OXALIPLATIN
     Dosage: DAY1
     Route: 041
     Dates: start: 20200915, end: 20201027
  16. FLUOROURACIL [Concomitant]
     Active Substance: FLUOROURACIL
     Indication: Rectal cancer
     Dosage: UNCERTAIN DOSAGE AND DAY1-3
     Route: 040
     Dates: start: 20200825, end: 20200827
  17. FLUOROURACIL [Concomitant]
     Active Substance: FLUOROURACIL
     Dosage: DAY1-3
     Route: 041
     Dates: start: 20200825, end: 20200827
  18. FLUOROURACIL [Concomitant]
     Active Substance: FLUOROURACIL
     Dosage: UNCERTAIN DOSAGE AND DAY1-3
     Route: 040
     Dates: start: 20200915, end: 20201029
  19. FLUOROURACIL [Concomitant]
     Active Substance: FLUOROURACIL
     Dosage: DAY1-3
     Route: 041
     Dates: start: 20200915, end: 20201029
  20. FLUOROURACIL [Concomitant]
     Active Substance: FLUOROURACIL
     Dosage: UNCERTAIN DOSAGE AND DAY1-3
     Route: 040
     Dates: start: 20201124, end: 20201224
  21. FLUOROURACIL [Concomitant]
     Active Substance: FLUOROURACIL
     Dosage: DAY1-3
     Route: 041
     Dates: start: 20201124, end: 20201224
  22. FLUOROURACIL [Concomitant]
     Active Substance: FLUOROURACIL
     Dosage: UNCERTAIN DOSAGE AND DAY1-3
     Route: 040
     Dates: start: 20210105, end: 20210610
  23. FLUOROURACIL [Concomitant]
     Active Substance: FLUOROURACIL
     Dosage: DAY1-3
     Route: 041
     Dates: start: 20210105, end: 20210610
  24. FLUOROURACIL [Concomitant]
     Active Substance: FLUOROURACIL
     Dosage: UNCERTAIN DOSAGE AND DAY1-3
     Route: 040
     Dates: start: 20210629, end: 20210701
  25. FLUOROURACIL [Concomitant]
     Active Substance: FLUOROURACIL
     Dosage: DAY1-3
     Route: 041
     Dates: start: 20210629, end: 20210701
  26. FLUOROURACIL [Concomitant]
     Active Substance: FLUOROURACIL
     Dosage: UNCERTAIN DOSAGE AND DAY1-3
     Route: 040
     Dates: start: 20210727, end: 20211104
  27. FLUOROURACIL [Concomitant]
     Active Substance: FLUOROURACIL
     Dosage: DAY1-3
     Route: 041
     Dates: start: 20210727, end: 20211104
  28. LEVOLEUCOVORIN CALCIUM [Concomitant]
     Active Substance: LEVOLEUCOVORIN CALCIUM
     Indication: Rectal cancer
     Dosage: DAY1
     Route: 041
     Dates: start: 20200825, end: 20200825
  29. LEVOLEUCOVORIN CALCIUM [Concomitant]
     Active Substance: LEVOLEUCOVORIN CALCIUM
     Dosage: DAY1
     Route: 041
     Dates: start: 20200915, end: 20201027
  30. LEVOLEUCOVORIN CALCIUM [Concomitant]
     Active Substance: LEVOLEUCOVORIN CALCIUM
     Dosage: DAY1
     Route: 041
     Dates: start: 20201124, end: 20201222
  31. LEVOLEUCOVORIN CALCIUM [Concomitant]
     Active Substance: LEVOLEUCOVORIN CALCIUM
     Dosage: DAY1
     Route: 041
     Dates: start: 20210105, end: 20210608
  32. LEVOLEUCOVORIN CALCIUM [Concomitant]
     Active Substance: LEVOLEUCOVORIN CALCIUM
     Dosage: DAY1
     Route: 041
     Dates: start: 20210629, end: 20210629
  33. LEVOLEUCOVORIN CALCIUM [Concomitant]
     Active Substance: LEVOLEUCOVORIN CALCIUM
     Dosage: DAY1
     Route: 041
     Dates: start: 20210727, end: 20211102
  34. PALONOSETRON HYDROCHLORIDE [Concomitant]
     Active Substance: PALONOSETRON HYDROCHLORIDE
     Dosage: DAY1
     Route: 042
     Dates: start: 20200915, end: 20201027
  35. PALONOSETRON HYDROCHLORIDE [Concomitant]
     Active Substance: PALONOSETRON HYDROCHLORIDE
     Dosage: DAY1
     Route: 042
     Dates: start: 20201124, end: 20201222
  36. DEXAMETHASONE SODIUM PHOSPHATE [Concomitant]
     Active Substance: DEXAMETHASONE SODIUM PHOSPHATE
     Dosage: DAY1
     Route: 042
     Dates: start: 20200915, end: 20201027
  37. DEXAMETHASONE SODIUM PHOSPHATE [Concomitant]
     Active Substance: DEXAMETHASONE SODIUM PHOSPHATE
     Dosage: DAY1
     Route: 042
     Dates: start: 20201124, end: 20201222
  38. DEXAMETHASONE [Concomitant]
     Active Substance: DEXAMETHASONE
     Dosage: DAY2-4
     Route: 048
     Dates: start: 20200916, end: 20201030
  39. DEXAMETHASONE [Concomitant]
     Active Substance: DEXAMETHASONE
     Dosage: DAY2-4
     Route: 048
     Dates: start: 20201125, end: 20201225
  40. APREPITANT [Concomitant]
     Active Substance: APREPITANT
     Dosage: DAY2-3
     Route: 048
     Dates: start: 20200915, end: 20201027
  41. APREPITANT [Concomitant]
     Active Substance: APREPITANT
     Dosage: DAY2-3
     Route: 048
     Dates: start: 20200916, end: 20201029
  42. APREPITANT [Concomitant]
     Active Substance: APREPITANT
     Dosage: DAY2-3
     Route: 048
     Dates: start: 20201124, end: 20201222
  43. APREPITANT [Concomitant]
     Active Substance: APREPITANT
     Dosage: DAY2-3
     Route: 048
     Dates: start: 20201124, end: 20201225
  44. LOPERAMIDE HYDROCHLORIDE [Concomitant]
     Active Substance: LOPERAMIDE HYDROCHLORIDE
     Dosage: DOSAGE IS UNCERTAIN.
     Route: 065
  45. TIPIRACIL HYDROCHLORIDE\TRIFLURIDINE [Concomitant]
     Active Substance: TIPIRACIL HYDROCHLORIDE\TRIFLURIDINE
     Indication: Rectal adenocarcinoma
     Route: 048
     Dates: start: 20220426

REACTIONS (2)
  - Peripheral sensory neuropathy [Recovered/Resolved]
  - Neutrophil count decreased [Recovered/Resolved]

NARRATIVE: CASE EVENT DATE: 20200908
